FAERS Safety Report 11897845 (Version 2)
Quarter: 2016Q1

REPORT INFORMATION
  Report Type: Spontaneous
  Country: US (occurrence: US)
  Receive Date: 20160108
  Receipt Date: 20160115
  Transmission Date: 20160526
  Serious: Yes (Other)
  Sender: FDA-Public Use
  Company Number: US-ROCHE-1691221

PATIENT
  Sex: Male

DRUGS (6)
  1. AMLODIPINE BESYLATE. [Concomitant]
     Active Substance: AMLODIPINE BESYLATE
  2. BUSPIRONE HCL [Concomitant]
     Active Substance: BUSPIRONE HYDROCHLORIDE
  3. ARIPIPRAZOLE. [Concomitant]
     Active Substance: ARIPIPRAZOLE
  4. FINASTERIDE. [Concomitant]
     Active Substance: FINASTERIDE
  5. XOLAIR [Suspect]
     Active Substance: OMALIZUMAB
     Indication: PEMPHIGOID
     Route: 058
  6. PRAZOSIN HCL [Concomitant]
     Active Substance: PRAZOSIN HYDROCHLORIDE

REACTIONS (2)
  - Hallucination [Not Recovered/Not Resolved]
  - Mental disorder [Not Recovered/Not Resolved]
